FAERS Safety Report 9102204 (Version 4)
Quarter: 2014Q2

REPORT INFORMATION
  Report Type: Spontaneous
  Country: US (occurrence: US)
  Receive Date: 20130218
  Receipt Date: 20140425
  Transmission Date: 20141212
  Serious: Yes (Hospitalization, Other)
  Sender: FDA-Public Use
  Company Number: US-009507513-1302USA007783

PATIENT
  Sex: Female
  Weight: 78.91 kg

DRUGS (12)
  1. FOSAMAX [Suspect]
     Indication: OSTEOPENIA
     Dosage: 70 MG, UNK
     Route: 048
     Dates: start: 20060523, end: 20060906
  2. FOSAMAX PLUS D [Suspect]
     Indication: OSTEOPENIA
     Dosage: 70/2800, QW
     Route: 048
     Dates: start: 20060906
  3. PRILOSEC [Concomitant]
     Dosage: 20 MG, BID
     Dates: start: 1990
  4. LEVOTHYROXINE SODIUM [Concomitant]
     Indication: HYPOTHYROIDISM
     Dosage: 100 MICROGRAM, QD
     Route: 048
     Dates: start: 1968
  5. AMITRIPTYLINE HYDROCHLORIDE [Concomitant]
     Indication: SCLERODERMA
     Dosage: 25 MG, HS
     Route: 048
     Dates: start: 1980
  6. HYDROCHLOROTHIAZIDE (+) TRIAMTERENE [Concomitant]
     Indication: SCLERODERMA
     Dosage: 25/37.5
     Dates: start: 1970
  7. AMLODIPINE [Concomitant]
     Indication: SCLERODERMA
     Dosage: 5 MG, QD
     Route: 048
     Dates: start: 2008
  8. OSTEO-BI-FLEX [Concomitant]
     Dosage: 1 DF, QD
     Route: 048
     Dates: start: 1982
  9. VITAMINS (UNSPECIFIED) [Concomitant]
     Dosage: 2000 IU, QD
     Dates: start: 1982
  10. VITAMIN D (UNSPECIFIED) [Concomitant]
     Indication: OSTEOPENIA
     Dosage: UNK
     Dates: start: 2005
  11. CALCIUM (UNSPECIFIED) [Concomitant]
     Indication: OSTEOPENIA
     Dosage: 1200-1800  MG, QD
     Dates: start: 2002
  12. SYNTHROID [Concomitant]
     Indication: HYPOTHYROIDISM
     Dosage: 0.1 MG, QD

REACTIONS (29)
  - Femur fracture [Recovered/Resolved]
  - Intramedullary rod insertion [Unknown]
  - Low turnover osteopathy [Unknown]
  - Fall [Unknown]
  - Osteoporosis [Unknown]
  - Osteoarthritis [Unknown]
  - Spondylolisthesis [Unknown]
  - Pulmonary mass [Unknown]
  - Lung disorder [Unknown]
  - Leukocytosis [Unknown]
  - Hypokalaemia [Unknown]
  - Actinic keratosis [Unknown]
  - Essential hypertension [Unknown]
  - Barrett^s oesophagus [Unknown]
  - Hypercholesterolaemia [Unknown]
  - Pernicious anaemia [Unknown]
  - Intervertebral disc degeneration [Unknown]
  - Malignant breast lump removal [Unknown]
  - Device breakage [Unknown]
  - Anaemia [Unknown]
  - Pain [Not Recovered/Not Resolved]
  - Cellulitis [Unknown]
  - Pneumonia [Unknown]
  - Deep vein thrombosis [Unknown]
  - Oedema [Unknown]
  - Meniscus injury [Unknown]
  - Osteoarthritis [Unknown]
  - Lumbar spinal stenosis [Unknown]
  - Back pain [Not Recovered/Not Resolved]
